FAERS Safety Report 7909536-X (Version None)
Quarter: 2011Q4

REPORT INFORMATION
  Report Type: 
  Country: None (occurrence: None)
  Receive Date: 20111111
  Receipt Date: 20111103
  Transmission Date: 20120403
  Serious: Yes (Other)
  Sender: FDA-Public Use
  Company Number: US-BAYER-201014072NA

PATIENT
  Age: 23 Year
  Sex: Female
  Weight: 55 kg

DRUGS (41)
  1. LOESTRIN 1.5/30 [Concomitant]
     Dates: start: 20081101
  2. BUPROPION HCL [Concomitant]
     Dates: start: 20090301
  3. IBUPROFEN [Concomitant]
     Dates: start: 20061201
  4. DOXYCYCLINE [Concomitant]
     Dosage: UNK
     Dates: start: 20060101
  5. KINEVAC [Concomitant]
     Dosage: HEPATOBILIARY SCAN
     Dates: start: 20091007, end: 20091007
  6. DOXYCYCLINE [Concomitant]
     Dates: start: 20061001
  7. ALPRAZOLAM [Concomitant]
     Dates: start: 20090601
  8. OXYCODONE HCL AND ACETAMINOPHEN [Concomitant]
     Dates: start: 20090601
  9. DOXYCYCLINE [Concomitant]
     Dosage: UNK
     Dates: start: 20081001
  10. ADDERALL 5 [Concomitant]
  11. METHYLPREDNISOLONE [Concomitant]
     Dates: start: 20090601
  12. LEVAQUIN [Concomitant]
     Dates: start: 20080201
  13. YAZ [Suspect]
     Dosage: UNK
     Route: 048
     Dates: start: 20070101, end: 20090101
  14. ZOFRAN [Concomitant]
     Dates: start: 20061201
  15. METOCLOPRAMIDE [Concomitant]
     Dates: start: 20061201
  16. LOESTRIN 1.5/30 [Concomitant]
     Dates: start: 20080901
  17. ONDANSETRON [Concomitant]
     Dates: start: 20080201
  18. DOXYCYCLINE [Concomitant]
     Dates: start: 20090101
  19. EXCEDRIN (MIGRAINE) [Concomitant]
     Dosage: SPORADICALLY
  20. YASMIN [Suspect]
     Dosage: UNK
     Route: 048
     Dates: start: 20040101, end: 20060101
  21. PROMETHAZINE [Concomitant]
     Dates: start: 20061201
  22. OXYCODONE HCL [Concomitant]
     Dates: start: 20060601
  23. TRETINOIN [Concomitant]
     Dates: start: 20060601
  24. BIAXIN [Concomitant]
     Dates: start: 20080101
  25. EXCEDRIN [ACETYLSALICYLIC ACID,CAFFEINE,SALICYLAMIDE] [Concomitant]
     Dosage: SPORADICALLY
  26. CLINDAMYCIN [Concomitant]
     Dates: start: 20090601
  27. SERTRALINE HYDROCHLORIDE [Concomitant]
     Dates: start: 20080101
  28. BUPROPION HCL [Concomitant]
     Dates: start: 20090301
  29. DOXYCYCLINE [Concomitant]
     Dosage: UNK
     Dates: start: 20081201
  30. ACCUTANE [Concomitant]
  31. BACTRIM DS [Concomitant]
     Dates: start: 20090101
  32. POTASSIUM CHLORIDE [Concomitant]
     Dates: start: 20070101
  33. SULFAMETHOXAZOLE AND TRIMETHOPRIM [Concomitant]
     Dates: start: 20060601
  34. TRAMADOL HCL [Concomitant]
     Dates: start: 20060801
  35. OXYCODONE HCL [Concomitant]
     Dosage: UNK
     Dates: start: 20080201
  36. CLINDAMYCIN [Concomitant]
     Dosage: UNK
     Dates: start: 20081001
  37. ALPRAZOLAM [Concomitant]
     Dates: start: 20090601
  38. DRYSOL [Concomitant]
     Dates: start: 20080401
  39. DOXYCYCLINE [Concomitant]
     Dosage: UNK
     Dates: start: 20100101
  40. LAMICTAL [Concomitant]
  41. POTASSIUM [Concomitant]
     Dates: start: 20070101

REACTIONS (4)
  - CHOLECYSTITIS CHRONIC [None]
  - ABDOMINAL DISCOMFORT [None]
  - NAUSEA [None]
  - GALLBLADDER DISORDER [None]
